FAERS Safety Report 9238315 (Version 1)
Quarter: 2013Q2

REPORT INFORMATION
  Report Type: Spontaneous
  Country: US (occurrence: None)
  Receive Date: 20130417
  Receipt Date: 20130417
  Transmission Date: 20140414
  Serious: Yes (Death)
  Sender: FDA-Public Use
  Company Number: None

PATIENT
  Age: 72 Year
  Sex: Male
  Weight: 74 kg

DRUGS (1)
  1. GANETESPIB [Suspect]
     Indication: OESOPHAGEAL CANCER METASTATIC
     Dates: start: 20101103, end: 20101215

REACTIONS (1)
  - Malignant neoplasm progression [None]
